FAERS Safety Report 25754832 (Version 1)
Quarter: 2025Q3

REPORT INFORMATION
  Report Type: Spontaneous
  Country: EU (occurrence: EU)
  Receive Date: 20250903
  Receipt Date: 20250903
  Transmission Date: 20251020
  Serious: Yes (Other)
  Sender: RANBAXY
  Company Number: EU-SUN PHARMACEUTICAL INDUSTRIES LTD-2025RR-525428

PATIENT
  Age: 88 Year
  Sex: Female

DRUGS (2)
  1. ESCITALOPRAM [Interacting]
     Active Substance: ESCITALOPRAM OXALATE
     Indication: Antifungal treatment
     Dosage: 5 MILLIGRAM, DAILY
     Route: 065
  2. MICONAZOLE [Interacting]
     Active Substance: MICONAZOLE
     Indication: Antifungal treatment
     Dosage: 50 MILLIGRAM, DAILY
     Route: 065

REACTIONS (2)
  - Serotonin syndrome [Unknown]
  - Drug interaction [Unknown]
